FAERS Safety Report 5950684-1 (Version None)
Quarter: 2008Q4

REPORT INFORMATION
  Report Type: 
  Country: None (occurrence: None)
  Receive Date: 20081112
  Receipt Date: 20081111
  Transmission Date: 20090506
  Serious: Yes (Death)
  Sender: FDA-Public Use
  Company Number: JP-GENENTECH-271286

PATIENT

DRUGS (1)
  1. GRTPA [Suspect]
     Indication: EMBOLIC STROKE
     Dosage: UNK
     Route: 042

REACTIONS (1)
  - MYOCARDIAL INFARCTION [None]
